FAERS Safety Report 24749668 (Version 3)
Quarter: 2025Q1

REPORT INFORMATION
  Report Type: Spontaneous
  Country: AU (occurrence: AU)
  Receive Date: 20241218
  Receipt Date: 20250113
  Transmission Date: 20250408
  Serious: Yes (Hospitalization)
  Sender: BAUSCH AND LOMB
  Company Number: AU-MLMSERVICE-20241204-PI277964-00215-1

PATIENT
  Age: 24 Year
  Sex: Male

DRUGS (1)
  1. MESALAMINE [Suspect]
     Active Substance: MESALAMINE
     Indication: Colitis ulcerative
     Route: 054

REACTIONS (2)
  - Pancreatic pseudocyst [Recovered/Resolved]
  - Pancreatitis acute [Recovered/Resolved]
